FAERS Safety Report 8363879-7 (Version None)
Quarter: 2012Q2

REPORT INFORMATION
  Report Type: 
  Country: None (occurrence: None)
  Receive Date: 20120516
  Receipt Date: 20120109
  Transmission Date: 20120825
  Serious: No
  Sender: FDA-Public Use
  Company Number: US-ALEXION-A201200053

PATIENT
  Sex: Female
  Weight: 84.354 kg

DRUGS (21)
  1. VALACYCLOVIR HYDROCHLORIDE [Concomitant]
     Dosage: 1000 MG, PRN
     Route: 048
  2. ACETAMINOPHEN W/ CODEINE [Concomitant]
     Dosage: 325/30MG Q6H PRN
  3. ALPRAZOLAM [Concomitant]
     Dosage: 100 MG, QD
     Route: 048
  4. IRON [Concomitant]
     Dosage: 50 MG, QD
     Route: 048
  5. DOXYCYCLINE MONOHYDRATE [Concomitant]
     Dosage: 50 MG, BID
     Route: 048
  6. BUPROPION HCL [Concomitant]
     Dosage: 150 MG, BID
     Route: 048
  7. SOLIRIS [Suspect]
     Indication: PAROXYSMAL NOCTURNAL HAEMOGLOBINURIA
     Dosage: 600 MG, QW
     Route: 042
     Dates: start: 20100801
  8. DULOXETINE HYDROCHLORIDE [Concomitant]
     Dosage: 60 MG, QD
     Route: 048
  9. FOLIC ACID [Concomitant]
     Dosage: 2.5 MG, QD
     Route: 048
  10. VITAMIN D [Concomitant]
     Dosage: 400 IU, QD
     Route: 048
  11. ASCORBIC ACID [Concomitant]
     Dosage: 500 MG, TID
     Route: 048
  12. EVENING PRIMROSE OIL [Concomitant]
     Dosage: 1300 MG, QD
     Route: 048
  13. VITAMIN B6 [Concomitant]
     Dosage: 25 MG, QD
     Route: 048
  14. VITAMIN B-12 [Concomitant]
     Dosage: 2 MG, QD
     Route: 048
  15. LYSINE [Concomitant]
     Dosage: 500 MG, QOD
     Route: 048
  16. WARFARIN SODIUM [Concomitant]
     Dosage: 7.5 MG, QD
     Route: 048
  17. SOLIRIS [Suspect]
     Dosage: 900 MG, Q2W
     Route: 042
     Dates: start: 20100901
  18. LIDOCAINE/PRILOCAINE [Concomitant]
     Dosage: 2.5%, PRN
     Route: 061
  19. CALCIUM CARBONATE [Concomitant]
     Dosage: 600 MG, QD
     Route: 048
  20. GLUCOSAMINE [Concomitant]
     Dosage: 1000 MG, QD
     Route: 048
  21. SIMETHICONE [Concomitant]

REACTIONS (9)
  - FATIGUE [None]
  - HAEMATOCRIT DECREASED [None]
  - WHITE BLOOD CELL DISORDER [None]
  - BLOOD BILIRUBIN INCREASED [None]
  - HAEMOGLOBIN DECREASED [None]
  - OEDEMA PERIPHERAL [None]
  - NEUTROPHIL COUNT ABNORMAL [None]
  - NASOPHARYNGITIS [None]
  - ABDOMINAL DISCOMFORT [None]
